FAERS Safety Report 9219934 (Version 3)
Quarter: 2015Q3

REPORT INFORMATION
  Report Type: Report from Study
  Country: JP (occurrence: JP)
  Receive Date: 20130409
  Receipt Date: 20150930
  Transmission Date: 20151125
  Serious: Yes (Hospitalization)
  Sender: FDA-Public Use
  Company Number: JP-OTSUKA-JP-2013-10863

PATIENT

DRUGS (7)
  1. TOLVAPTAN [Suspect]
     Active Substance: TOLVAPTAN
     Indication: OEDEMA DUE TO CARDIAC DISEASE
     Dosage: 7.5 MG, QD
     Route: 048
     Dates: start: 20130213, end: 20130220
  2. FEBURIC [Concomitant]
     Active Substance: FEBUXOSTAT
     Indication: PRODUCT USED FOR UNKNOWN INDICATION
     Dosage: 10 MG/DAY
     Route: 048
  3. LASIX [Suspect]
     Active Substance: FUROSEMIDE
     Dosage: 20 MG/DAY
     Route: 042
     Dates: start: 20130208
  4. NEODOPASTON [Suspect]
     Active Substance: CARBIDOPA\LEVODOPA
     Indication: PRODUCT USED FOR UNKNOWN INDICATION
     Dosage: 600 MG/DAY
     Route: 048
  5. SELARA [Concomitant]
     Active Substance: EPLERENONE
     Indication: CARDIAC FAILURE
     Dosage: 25 MG/DAY
     Route: 048
     Dates: start: 20130204
  6. LASIX [Suspect]
     Active Substance: FUROSEMIDE
     Indication: CARDIAC FAILURE
     Dosage: 40 MG/DAY
     Route: 042
     Dates: start: 20130204, end: 20130207
  7. ITOROL [Concomitant]
     Active Substance: ISOSORBIDE MONONITRATE
     Indication: CARDIAC FAILURE
     Dosage: 40 MG/DAY
     Route: 048
     Dates: start: 20130204

REACTIONS (4)
  - Drug effect incomplete [Unknown]
  - Hypernatraemia [Not Recovered/Not Resolved]
  - Renal impairment [Not Recovered/Not Resolved]
  - Blood lactate dehydrogenase increased [Not Recovered/Not Resolved]

NARRATIVE: CASE EVENT DATE: 20130215
